FAERS Safety Report 5333289-5 (Version None)
Quarter: 2007Q2

REPORT INFORMATION
  Report Type: 
  Country: None (occurrence: None)
  Receive Date: 20070521
  Receipt Date: 20070508
  Transmission Date: 20071010
  Serious: Yes (Hospitalization)
  Sender: FDA-Public Use
  Company Number: 230772K07USA

PATIENT
  Age: 45 Year
  Sex: Female

DRUGS (10)
  1. REBIF [Suspect]
     Indication: MULTIPLE SCLEROSIS
     Dosage: SEE IMAGE
     Route: 058
     Dates: start: 20070118, end: 20070101
  2. REBIF [Suspect]
     Indication: MULTIPLE SCLEROSIS
     Dosage: SEE IMAGE
     Route: 058
     Dates: start: 20070101
  3. TYLENOL (COTYLENOL) [Concomitant]
  4. MOTRIN [Concomitant]
  5. LOPRESSOR [Concomitant]
  6. KLONOPIN [Concomitant]
  7. FIBER (ALL OTHER NON-THERAPEUTIC PRODUCTS) [Concomitant]
  8. MULTI-VITAMIN (ALL OTHER NON-THERAPEUTIC PRODUCTS) [Concomitant]
  9. NASONEX [Concomitant]
  10. BENADRYL [Concomitant]

REACTIONS (4)
  - ABDOMINAL DISTENSION [None]
  - ANAEMIA [None]
  - DECREASED APPETITE [None]
  - DIVERTICULITIS [None]
